FAERS Safety Report 26181790 (Version 1)
Quarter: 2025Q4

REPORT INFORMATION
  Report Type: Report from Study
  Country: CA (occurrence: CA)
  Receive Date: 20251221
  Receipt Date: 20251221
  Transmission Date: 20260117
  Serious: Yes (Other)
  Sender: CELLTRION
  Company Number: CA-CELLTRION INC.-2025CA025115

PATIENT

DRUGS (5)
  1. ADALIMUMAB-AATY [Suspect]
     Active Substance: ADALIMUMAB-AATY
     Indication: Rheumatoid arthritis
     Dosage: 40 MG, EVERY 14 DAYS
     Route: 058
     Dates: start: 20250123, end: 202507
  2. ADALIMUMAB-AATY [Suspect]
     Active Substance: ADALIMUMAB-AATY
  3. OZEMPIC [Concomitant]
     Active Substance: SEMAGLUTIDE
     Indication: Product used for unknown indication
     Dosage: UNK
     Route: 065
  4. RIFAMPIN [Concomitant]
     Active Substance: RIFAMPIN
     Indication: Latent tuberculosis
     Dosage: 600 MG, DAILY
     Route: 065
  5. SEMAGLUTIDE [Concomitant]
     Active Substance: SEMAGLUTIDE
     Indication: Product used for unknown indication
     Route: 065

REACTIONS (5)
  - Feeling abnormal [Unknown]
  - Pneumonia [Unknown]
  - Bronchitis [Unknown]
  - Therapy cessation [Unknown]
  - Refusal of treatment by patient [Unknown]

NARRATIVE: CASE EVENT DATE: 20250101
